FAERS Safety Report 25502132 (Version 3)
Quarter: 2025Q3

REPORT INFORMATION
  Report Type: Spontaneous
  Country: US (occurrence: US)
  Receive Date: 20250702
  Receipt Date: 20250902
  Transmission Date: 20251020
  Serious: No
  Sender: PADAGIS
  Company Number: US-PADAGIS-2025PAD00771

PATIENT

DRUGS (7)
  1. TRETINOIN [Suspect]
     Active Substance: TRETINOIN
     Indication: Acne
     Route: 065
     Dates: start: 20230823
  2. TRETINOIN [Suspect]
     Active Substance: TRETINOIN
     Route: 065
     Dates: start: 20240205
  3. TRETINOIN [Suspect]
     Active Substance: TRETINOIN
     Route: 065
     Dates: start: 20240617
  4. TRETINOIN [Suspect]
     Active Substance: TRETINOIN
     Route: 065
     Dates: start: 20241130
  5. TRETINOIN [Suspect]
     Active Substance: TRETINOIN
     Route: 065
     Dates: start: 20250512
  6. TRETINOIN [Suspect]
     Active Substance: TRETINOIN
     Route: 065
     Dates: start: 20250521
  7. TRETINOIN [Suspect]
     Active Substance: TRETINOIN
     Route: 065
     Dates: start: 20250619

REACTIONS (2)
  - Application site erythema [Recovered/Resolved]
  - Drug ineffective [Unknown]
